FAERS Safety Report 6944920-2 (Version None)
Quarter: 2010Q3

REPORT INFORMATION
  Report Type: 
  Country: None (occurrence: None)
  Receive Date: 20100827
  Receipt Date: 20100819
  Transmission Date: 20110219
  Serious: Yes (Hospitalization)
  Sender: FDA-Public Use
  Company Number: JP-JNJFOC-20100801461

PATIENT
  Sex: Female
  Weight: 52 kg

DRUGS (12)
  1. REMICADE [Suspect]
     Indication: RHEUMATOID ARTHRITIS
     Route: 042
  2. REMICADE [Suspect]
     Route: 042
  3. REMICADE [Suspect]
     Route: 042
  4. REMICADE [Suspect]
     Route: 042
  5. REMICADE [Suspect]
     Route: 042
  6. RHEUMATREX [Concomitant]
     Indication: RHEUMATOID ARTHRITIS
     Route: 048
  7. MUCOSTA [Concomitant]
     Route: 048
  8. COTRIM [Concomitant]
     Route: 048
  9. RABEPRAZOLE SODIUM [Concomitant]
     Route: 048
  10. ISCOTIN [Concomitant]
     Route: 048
  11. PYDOXAL [Concomitant]
     Route: 048
  12. JUVELA N [Concomitant]
     Route: 048

REACTIONS (5)
  - DYSPNOEA [None]
  - INFUSION RELATED REACTION [None]
  - OXYGEN SATURATION DECREASED [None]
  - PHARYNGEAL OEDEMA [None]
  - RASH [None]
